FAERS Safety Report 9671904 (Version 1)
Quarter: 2013Q4

REPORT INFORMATION
  Report Type: Spontaneous
  Country: US (occurrence: US)
  Receive Date: 20131106
  Receipt Date: 20131106
  Transmission Date: 20140711
  Serious: No
  Sender: FDA-Public Use
  Company Number: US-ENDO PHARMACEUTICALS INC.-CARI20130007

PATIENT
  Age: 59 Year
  Sex: Male

DRUGS (1)
  1. CARISOPRODOL TABLETS 350MG [Suspect]
     Indication: PRODUCT USED FOR UNKNOWN INDICATION
     Route: 048
     Dates: start: 20130723, end: 20130723

REACTIONS (1)
  - Drug ineffective [Recovered/Resolved]
